FAERS Safety Report 5976988-4 (Version None)
Quarter: 2008Q4

REPORT INFORMATION
  Report Type: 
  Country: None (occurrence: None)
  Receive Date: 20081203
  Receipt Date: 20080806
  Transmission Date: 20090506
  Serious: Yes (Hospitalization)
  Sender: FDA-Public Use
  Company Number: US-AMGEN-QUU270104

PATIENT
  Sex: Female
  Weight: 114 kg

DRUGS (6)
  1. ENBREL [Suspect]
     Indication: RHEUMATOID ARTHRITIS
     Route: 058
     Dates: start: 20030101, end: 20080117
  2. MELOXICAM [Concomitant]
     Dates: start: 20070201
  3. SYNTHROID [Concomitant]
  4. INDERAL [Concomitant]
  5. NORVASC [Concomitant]
  6. ALTACE [Concomitant]

REACTIONS (5)
  - CHEST PAIN [None]
  - CHILLS [None]
  - ELECTROCARDIOGRAM ABNORMAL [None]
  - HEPATIC STEATOSIS [None]
  - PNEUMONIA [None]
